FAERS Safety Report 12920117 (Version 1)
Quarter: 2016Q4

REPORT INFORMATION
  Report Type: Spontaneous
  Country: FR (occurrence: FR)
  Receive Date: 20161107
  Receipt Date: 20161107
  Transmission Date: 20170207
  Serious: Yes (Life-Threatening, Hospitalization, Other)
  Sender: FDA-Public Use
  Company Number: FR-ELI_LILLY_AND_COMPANY-FR201610009544

PATIENT
  Age: 68 Year
  Sex: Male
  Weight: 77 kg

DRUGS (3)
  1. GEMZAR [Suspect]
     Active Substance: GEMCITABINE HYDROCHLORIDE
     Indication: CHOLANGIOCARCINOMA
     Dosage: 2 COURSES MONTHLY
     Route: 042
     Dates: start: 20150122, end: 201604
  2. GEMZAR [Suspect]
     Active Substance: GEMCITABINE HYDROCHLORIDE
     Dosage: THREE COURSES MONTHLY
     Dates: start: 201604
  3. OXALIPLATIN. [Suspect]
     Active Substance: OXALIPLATIN
     Indication: CHOLANGIOCARCINOMA
     Dosage: UNK, UNKNOWN
     Route: 065

REACTIONS (8)
  - Thrombocytopenia [Recovering/Resolving]
  - Hypertension [Not Recovered/Not Resolved]
  - Hypersensitivity [Unknown]
  - Off label use [Recovered/Resolved]
  - Infection [Unknown]
  - Haemolytic anaemia [Not Recovered/Not Resolved]
  - Thrombotic microangiopathy [Unknown]
  - Malignant neoplasm progression [Recovering/Resolving]

NARRATIVE: CASE EVENT DATE: 20150122
